FAERS Safety Report 25238562 (Version 1)
Quarter: 2025Q2

REPORT INFORMATION
  Report Type: Spontaneous
  Country: GB (occurrence: GB)
  Receive Date: 20250425
  Receipt Date: 20250425
  Transmission Date: 20250717
  Serious: Yes (Disabling, Other)
  Sender: RANBAXY
  Company Number: GB-SUN PHARMACEUTICAL INDUSTRIES LTD-2025RR-504591

PATIENT
  Age: 15 Year
  Sex: Male
  Weight: 65 kg

DRUGS (1)
  1. ISOTRETINOIN [Suspect]
     Active Substance: ISOTRETINOIN
     Indication: Acne
     Route: 065
     Dates: start: 20230601, end: 20250202

REACTIONS (3)
  - Medication error [Unknown]
  - Erectile dysfunction [Recovered/Resolved with Sequelae]
  - Suicide threat [Recovered/Resolved with Sequelae]

NARRATIVE: CASE EVENT DATE: 20240401
